FAERS Safety Report 7527783-6 (Version None)
Quarter: 2011Q2

REPORT INFORMATION
  Report Type: 
  Country: None (occurrence: None)
  Receive Date: 20110607
  Receipt Date: 20110531
  Transmission Date: 20111010
  Serious: Yes (Hospitalization)
  Sender: FDA-Public Use
  Company Number: CA-B.I. PHARMACEUTICALS,INC./RIDGEFIELD-2011-CN-00695CN

PATIENT
  Age: 40 Year
  Sex: Male

DRUGS (3)
  1. CARBAMAZEPINE [Concomitant]
  2. PRADAXA [Suspect]
     Indication: ANTIPHOSPHOLIPID SYNDROME
     Dosage: 300 MG
     Route: 048
     Dates: start: 20110504, end: 20110531
  3. PLAVIX [Concomitant]
     Dates: start: 20101101, end: 20110531

REACTIONS (1)
  - CEREBRAL INFARCTION [None]
